FAERS Safety Report 16985321 (Version 1)
Quarter: 2019Q4

REPORT INFORMATION
  Report Type: Spontaneous
  Country: CA (occurrence: CA)
  Receive Date: 20191101
  Receipt Date: 20191101
  Transmission Date: 20200122
  Serious: Yes (Hospitalization, Other)
  Sender: FDA-Public Use
  Company Number: CA-PFIZER INC-2019466836

PATIENT
  Age: 34 Year
  Sex: Female
  Weight: 68 kg

DRUGS (8)
  1. QUETIAPINE FUMARAT [Suspect]
     Active Substance: QUETIAPINE FUMARATE
     Indication: PSYCHOTIC DISORDER
     Dosage: 400 MG, 1X/DAY
     Route: 065
  2. RISPERDAL CONSTA [Suspect]
     Active Substance: RISPERIDONE
     Dosage: 25 MG, UNK
     Route: 030
  3. ZYPREXA [Suspect]
     Active Substance: OLANZAPINE
     Indication: PSYCHOTIC DISORDER
     Dosage: 7.5 MG, 1X/DAY
     Route: 065
  4. ATIVAN [Suspect]
     Active Substance: LORAZEPAM
     Indication: PSYCHOTIC DISORDER
     Dosage: 1 MG, UNK
     Route: 065
  5. RISPERDAL CONSTA [Suspect]
     Active Substance: RISPERIDONE
     Indication: PSYCHOTIC DISORDER
     Dosage: 37.5 MG, 2 EVERY 1 MONTH
     Route: 030
  6. RISPERIDONE. [Suspect]
     Active Substance: RISPERIDONE
     Indication: PSYCHOTIC DISORDER
     Dosage: 0.5 MG, UNK
     Route: 065
  7. QUETIAPINE FUMARAT [Suspect]
     Active Substance: QUETIAPINE FUMARATE
     Dosage: 100 MG, 2X/DAY
     Route: 065
  8. QUETIAPINE FUMARAT [Suspect]
     Active Substance: QUETIAPINE FUMARATE
     Dosage: 100 MG, 1X/DAY
     Route: 065

REACTIONS (4)
  - Amenorrhoea [Unknown]
  - Blood cholesterol increased [Unknown]
  - Blood prolactin increased [Unknown]
  - Pituitary tumour benign [Unknown]
